FAERS Safety Report 4348740-7 (Version None)
Quarter: 2004Q2

REPORT INFORMATION
  Report Type: 
  Country: None (occurrence: None)
  Receive Date: 20040427
  Receipt Date: 20000425
  Transmission Date: 20050107
  Serious: Yes (Death, Life-Threatening, Hospitalization, Disabling, Congenital Anomaly)
  Sender: FDA-Public Use
  Company Number: BE-MERCK-00042414B1

PATIENT
  Sex: Female
  Weight: 2 kg

DRUGS (2)
  1. LOGIMAT [Suspect]
     Indication: HYPERTENSION
  2. HYZAAR [Suspect]
     Indication: ESSENTIAL HYPERTENSION

REACTIONS (32)
  - ANURIA [None]
  - APGAR SCORE LOW [None]
  - CAESAREAN SECTION [None]
  - CAPILLARY DISORDER [None]
  - CARDIOVASCULAR DISORDER [None]
  - CLUBBING [None]
  - CONGENITAL ANOMALY [None]
  - CONGENITAL ATRIAL SEPTAL DEFECT [None]
  - CONGENITAL GENITOURINARY ABNORMALITY [None]
  - CONGENITAL MUSCULOSKELETAL ANOMALY [None]
  - CYANOSIS NEONATAL [None]
  - FACIAL DYSMORPHISM [None]
  - FOETAL GROWTH RETARDATION [None]
  - FOETAL MALPOSITION [None]
  - LOWER LIMB DEFORMITY [None]
  - LUNG DISORDER [None]
  - MATERNAL DRUGS AFFECTING FOETUS [None]
  - NEONATAL ANURIA [None]
  - NEONATAL DISORDER [None]
  - NEONATAL RESPIRATORY DISTRESS SYNDROME [None]
  - NEONATAL RESPIRATORY FAILURE [None]
  - OLIGOHYDRAMNIOS [None]
  - OLIGURIA [None]
  - PATENT DUCTUS ARTERIOSUS [None]
  - PNEUMOTHORAX [None]
  - PREMATURE BABY [None]
  - PULMONARY HYPERTENSION [None]
  - PULMONARY HYPOPLASIA [None]
  - RENAL DISORDER [None]
  - RENAL TUBULAR DISORDER [None]
  - RESPIRATORY FAILURE [None]
  - TALIPES [None]
